FAERS Safety Report 9056766 (Version 1)
Quarter: 2013Q1

REPORT INFORMATION
  Report Type: Spontaneous
  Country: US (occurrence: US)
  Receive Date: 20130201
  Receipt Date: 20130201
  Transmission Date: 20140127
  Serious: No
  Sender: FDA-Public Use
  Company Number: US-009507513-1302USA000054

PATIENT
  Age: 57 None
  Sex: Male
  Weight: 94.33 kg

DRUGS (7)
  1. VICTRELIS [Suspect]
     Dosage: 4 DF, TID
     Route: 048
  2. PEGINTRON [Suspect]
     Dosage: 150 MICROGRAM, UNK
  3. RIBAVIRIN [Suspect]
     Dosage: 200 MG, UNK
  4. HUMIRA [Concomitant]
     Dosage: 40MG/0.8
  5. IBUPROFEN [Concomitant]
     Dosage: 200 MG, UNK
  6. METHOCARBAMOL [Concomitant]
     Dosage: 500 MG, UNK
  7. OXYCODONE [Concomitant]
     Dosage: 5 MG, UNK

REACTIONS (10)
  - Disturbance in attention [Unknown]
  - Crying [Unknown]
  - Vision blurred [Unknown]
  - Dyspnoea [Unknown]
  - Dysgeusia [Unknown]
  - Diarrhoea [Unknown]
  - Nausea [Unknown]
  - Fatigue [Unknown]
  - Irritability [Unknown]
  - Dizziness [Unknown]
